FAERS Safety Report 10073617 (Version 2)
Quarter: 2014Q2

REPORT INFORMATION
  Report Type: Report from Study
  Country: US (occurrence: US)
  Receive Date: 20140411
  Receipt Date: 20140411
  Transmission Date: 20141212
  Serious: Yes (Hospitalization, Other)
  Sender: FDA-Public Use
  Company Number: PHEH2014US006535

PATIENT
  Age: 39 Year
  Sex: Female
  Weight: 59.86 kg

DRUGS (2)
  1. GILENYA [Suspect]
     Indication: MULTIPLE SCLEROSIS
     Dosage: 1 DF, QD
     Route: 048
     Dates: start: 20140330, end: 20140402
  2. ALUMINIUM [Concomitant]

REACTIONS (8)
  - Heart rate decreased [Recovered/Resolved]
  - Rectal haemorrhage [Unknown]
  - Visual impairment [Recovering/Resolving]
  - Alopecia [Unknown]
  - Vision blurred [Unknown]
  - Dyspnoea exertional [Unknown]
  - Dizziness [Recovering/Resolving]
  - Balance disorder [Recovered/Resolved]
